FAERS Safety Report 17597681 (Version 1)
Quarter: 2020Q1

REPORT INFORMATION
  Report Type: Spontaneous
  Country: US (occurrence: US)
  Receive Date: 20200330
  Receipt Date: 20200330
  Transmission Date: 20200409
  Serious: No
  Sender: FDA-Public Use
  Company Number: US-AUROBINDO-AUR-APL-2019-037180

PATIENT

DRUGS (1)
  1. SERTRALINE HYDROCHLORIDE TABLETS 100MG [Suspect]
     Active Substance: SERTRALINE HYDROCHLORIDE
     Indication: PRODUCT USED FOR UNKNOWN INDICATION
     Dosage: 2 DOSAGE FORM (2 TABLETS)
     Route: 048

REACTIONS (7)
  - Memory impairment [Unknown]
  - Confusional state [Unknown]
  - Anxiety [Unknown]
  - Agoraphobia [Unknown]
  - Somnolence [Unknown]
  - Feeling abnormal [Unknown]
  - Product substitution issue [Unknown]
